FAERS Safety Report 8406801-7 (Version None)
Quarter: 2012Q2

REPORT INFORMATION
  Report Type: 
  Country: None (occurrence: None)
  Receive Date: 20120604
  Receipt Date: 20120531
  Transmission Date: 20120825
  Serious: No
  Sender: FDA-Public Use
  Company Number: US-BAYER-2012-054227

PATIENT
  Age: 43 Year
  Sex: Male

DRUGS (1)
  1. STAXYN [Suspect]
     Indication: ERECTILE DYSFUNCTION
     Dosage: 10 MG, UNK
     Dates: start: 20120529, end: 20120529

REACTIONS (2)
  - NAUSEA [None]
  - DIARRHOEA [None]
